FAERS Safety Report 6302758-3 (Version None)
Quarter: 2009Q3

REPORT INFORMATION
  Report Type: 
  Country: None (occurrence: None)
  Receive Date: 20090810
  Receipt Date: 20090803
  Transmission Date: 20100115
  Serious: Yes (Other)
  Sender: FDA-Public Use
  Company Number: US-ASTRAZENECA-2009SE06750

PATIENT
  Age: 16 Year
  Sex: Male

DRUGS (4)
  1. SEROQUEL XR [Suspect]
     Route: 048
  2. DEPAKOTE [Suspect]
  3. TENEX [Concomitant]
  4. STRATTERA [Concomitant]

REACTIONS (1)
  - NEUTROPHIL COUNT DECREASED [None]
